FAERS Safety Report 8167832-8 (Version None)
Quarter: 2012Q1

REPORT INFORMATION
  Report Type: 
  Country: None (occurrence: None)
  Receive Date: 20120227
  Receipt Date: 20120216
  Transmission Date: 20120608
  Serious: Yes (Death, Hospitalization, Other)
  Sender: FDA-Public Use
  Company Number: JP-JHP PHARMACEUTICALS, LLC-JHP201200021

PATIENT
  Sex: Male

DRUGS (5)
  1. DANTRIUM [Suspect]
     Indication: NEUROLEPTIC MALIGNANT SYNDROME
     Dosage: 20 MG, DAILY
     Route: 042
     Dates: start: 20120105, end: 20120111
  2. METHYLPREDNISOLONE SODIUM SUCCINATE [Concomitant]
     Dosage: UNK
     Dates: start: 20120105, end: 20120108
  3. DOPASTON [Concomitant]
     Dosage: UNK
     Dates: start: 20120103, end: 20120119
  4. CLINDAMYCIN [Concomitant]
     Indication: PNEUMONIA
     Dosage: UNK
     Dates: start: 20120102, end: 20120119
  5. CEFTAZIDIME [Concomitant]
     Indication: PNEUMONIA
     Dosage: UNK
     Dates: start: 20120102, end: 20120119

REACTIONS (3)
  - DISSEMINATED INTRAVASCULAR COAGULATION [None]
  - PLATELET COUNT DECREASED [None]
  - PNEUMONIA [None]
